FAERS Safety Report 8917414 (Version 1)
Quarter: 2012Q4

REPORT INFORMATION
  Report Type: 
  Country: GB (occurrence: GB)
  Receive Date: 20121120
  Receipt Date: 20121120
  Transmission Date: 20130627
  Serious: Yes (Other)
  Sender: FDA-Public Use
  Company Number: GB-PFIZER INC-2012286568

PATIENT
  Age: 66 Year
  Sex: Male
  Weight: 102.51 kg

DRUGS (10)
  1. CHAMPIX [Suspect]
     Indication: SMOKING CESSATION THERAPY
     Route: 048
     Dates: start: 20121020, end: 20121020
  2. TAMSULOSIN [Concomitant]
  3. MOMETASONE [Concomitant]
     Route: 045
  4. GLYCERYL TRINITRATE [Concomitant]
  5. CO-CODAMOL [Concomitant]
  6. LOSEC [Concomitant]
     Indication: GASTRIC DISORDER
     Dosage: 20 mg, UNK
     Route: 048
  7. METFORMIN [Concomitant]
     Indication: DIABETES
     Dosage: 1 g, UNK
     Route: 048
  8. RAMIPRIL [Concomitant]
     Indication: CARDIAC DISORDER
     Dosage: 5 mg, UNK
     Route: 048
  9. ATENOLOL [Concomitant]
     Indication: CARDIAC DISORDER
     Dosage: 50 mg, UNK
     Route: 048
  10. CLOPIDOGREL [Concomitant]
     Indication: CARDIAC DISORDER
     Dosage: 75 mg, UNK
     Route: 048

REACTIONS (5)
  - Dyspnoea [Recovered/Resolved]
  - Malaise [Recovered/Resolved]
  - Spinal pain [Recovered/Resolved]
  - Aphasia [Recovered/Resolved]
  - Anxiety [Recovered/Resolved]
